FAERS Safety Report 7536592-3 (Version None)
Quarter: 2011Q2

REPORT INFORMATION
  Report Type: 
  Country: None (occurrence: None)
  Receive Date: 20110609
  Receipt Date: 20110606
  Transmission Date: 20111010
  Serious: Yes (Death, Hospitalization)
  Sender: FDA-Public Use
  Company Number: US-PFIZER INC-2011013076

PATIENT
  Sex: Female

DRUGS (1)
  1. SUTENT [Suspect]
     Indication: METASTATIC RENAL CELL CARCINOMA
     Dosage: 50 MG, DAILY: 28 DAYS EVERY 42 DAYS
     Dates: start: 20101014, end: 20110218

REACTIONS (4)
  - RENAL FAILURE [None]
  - DEATH [None]
  - VOMITING [None]
  - DIARRHOEA [None]
